FAERS Safety Report 25869400 (Version 1)
Quarter: 2025Q4

REPORT INFORMATION
  Report Type: Report from Study
  Country: CN (occurrence: CN)
  Receive Date: 20251001
  Receipt Date: 20251001
  Transmission Date: 20260117
  Serious: Yes (Hospitalization, Other)
  Sender: PFIZER
  Company Number: CN-TAKEDA-2022TUS066879

PATIENT
  Age: 73 Year
  Sex: Female
  Weight: 50 kg

DRUGS (19)
  1. BRENTUXIMAB VEDOTIN [Suspect]
     Active Substance: BRENTUXIMAB VEDOTIN
     Indication: Peripheral T-cell lymphoma unspecified
     Dosage: 90 MILLIGRAM, Q3WEEKS
     Route: 041
     Dates: start: 20220815
  2. BRENTUXIMAB VEDOTIN [Suspect]
     Active Substance: BRENTUXIMAB VEDOTIN
     Dosage: 80 MILLIGRAM, Q3WEEKS
     Route: 041
     Dates: start: 20230213
  3. BRENTUXIMAB VEDOTIN [Suspect]
     Active Substance: BRENTUXIMAB VEDOTIN
     Dosage: 81 MILLIGRAM, Q3WEEKS
     Route: 041
     Dates: start: 20230422
  4. AMLODIPINE BESYLATE [Concomitant]
     Active Substance: AMLODIPINE BESYLATE
     Indication: Hypertension
     Dosage: UNK UNK, QD
     Route: 048
     Dates: start: 2012
  5. PROPAFENONE HYDROCHLORIDE [Concomitant]
     Active Substance: PROPAFENONE HYDROCHLORIDE
     Indication: Arrhythmia
     Dosage: 150 MILLIGRAM, TID
     Route: 048
     Dates: start: 20220810
  6. PROPAFENONE HYDROCHLORIDE [Concomitant]
     Active Substance: PROPAFENONE HYDROCHLORIDE
     Indication: Supraventricular extrasystoles
  7. CYCLOPHOSPHAMIDE [Concomitant]
     Active Substance: CYCLOPHOSPHAMIDE
     Indication: Lymphoma
     Dosage: 0.8 GRAM, QD
     Route: 065
     Dates: start: 20220816, end: 20220816
  8. DOXORUBICIN HYDROCHLORIDE [Concomitant]
     Active Substance: DOXORUBICIN HYDROCHLORIDE
     Indication: Lymphoma
     Dosage: 20 MILLIGRAM, QD
     Route: 065
     Dates: start: 20220816, end: 20220816
  9. PREDNISONE ACETATE [Concomitant]
     Active Substance: PREDNISONE ACETATE
     Indication: Lymphoma
     Dosage: 40 MILLIGRAM, QD
     Route: 048
     Dates: start: 20220816, end: 20220820
  10. PREDNISONE ACETATE [Concomitant]
     Active Substance: PREDNISONE ACETATE
     Dosage: 30 MILLIGRAM, BID
     Route: 048
     Dates: start: 20220816, end: 20220820
  11. DEXAMETHASONE SODIUM PHOSPHATE [Concomitant]
     Active Substance: DEXAMETHASONE SODIUM PHOSPHATE
     Indication: Allergy prophylaxis
     Dosage: 5 MILLIGRAM, QD
     Route: 065
     Dates: start: 20220815, end: 20220816
  12. DEXAMETHASONE SODIUM PHOSPHATE [Concomitant]
     Active Substance: DEXAMETHASONE SODIUM PHOSPHATE
     Indication: Antiallergic therapy
     Dosage: 10 MILLIGRAM, QD
     Route: 033
     Dates: start: 20220816, end: 20220816
  13. DIPHENHYDRAMINE HYDROCHLORIDE [Concomitant]
     Active Substance: DIPHENHYDRAMINE HYDROCHLORIDE
     Indication: Allergy prophylaxis
     Dosage: 20 MILLIGRAM, QD
     Route: 030
     Dates: start: 20220815, end: 20220816
  14. SODIUM BICARBONATE [Concomitant]
     Active Substance: SODIUM BICARBONATE
     Indication: Prophylaxis
     Dosage: 40 MILLIGRAM, QD
     Route: 065
     Dates: start: 20220815, end: 20220817
  15. PALONOSETRON HYDROCHLORIDE [Concomitant]
     Active Substance: PALONOSETRON HYDROCHLORIDE
     Indication: Antiemetic supportive care
     Dosage: 0.25 MILLIGRAM, QD
     Route: 065
     Dates: start: 20220815, end: 20220815
  16. MESNA [Concomitant]
     Active Substance: MESNA
     Indication: Prophylaxis
     Dosage: 0.4 GRAM, BID
     Route: 042
     Dates: start: 20220816, end: 20220816
  17. DALTEPARIN SODIUM [Concomitant]
     Active Substance: DALTEPARIN SODIUM
     Indication: Prophylaxis
     Dosage: 2500 INTERNATIONAL UNIT, QD
     Route: 058
     Dates: start: 20220816, end: 20220817
  18. NOCARDIA RUBRA CELL WALL SKELETON [Concomitant]
     Indication: Lymphoma
     Dosage: 800 MICROGRAM, QD
     Route: 033
     Dates: start: 20220816, end: 20220816
  19. METHYLPREDNISOLONE SODIUM SUCCINATE [Concomitant]
     Active Substance: METHYLPREDNISOLONE SODIUM SUCCINATE
     Indication: Prophylaxis
     Dosage: 40 MILLIGRAM, QD
     Route: 042
     Dates: start: 20220816, end: 20220816

REACTIONS (10)
  - Agranulocytosis [Recovered/Resolved]
  - Pneumonia [Recovered/Resolved]
  - Lymphocyte count decreased [Recovered/Resolved]
  - Anaemia [Recovered/Resolved]
  - Hypoalbuminaemia [Unknown]
  - Groin pain [Unknown]
  - Abdominal pain lower [Unknown]
  - Abdominal discomfort [Recovered/Resolved]
  - Diarrhoea [Recovered/Resolved]
  - Off label use [Unknown]

NARRATIVE: CASE EVENT DATE: 20220815
